FAERS Safety Report 20759298 (Version 1)
Quarter: 2022Q2

REPORT INFORMATION
  Report Type: Spontaneous
  Country: US (occurrence: US)
  Receive Date: 20220427
  Receipt Date: 20220427
  Transmission Date: 20220721
  Serious: No
  Sender: FDA-Public Use
  Company Number: US-BioHaven Pharmaceuticals-2022BHV000151

PATIENT
  Age: 59 Year

DRUGS (4)
  1. NURTEC ODT [Suspect]
     Active Substance: RIMEGEPANT SULFATE
     Indication: Migraine
     Dosage: WILL USE THEM AS ABORTIVE MEDICATION
     Route: 065
  2. NURTEC ODT [Suspect]
     Active Substance: RIMEGEPANT SULFATE
     Indication: Migraine
  3. TRYPTOPHAN [Concomitant]
     Active Substance: TRYPTOPHAN
     Indication: Migraine
     Route: 065
  4. BOTOX [Concomitant]
     Active Substance: ONABOTULINUMTOXINA
     Indication: Migraine
     Route: 065

REACTIONS (11)
  - Somnolence [Recovered/Resolved]
  - Anxiety [Recovered/Resolved]
  - Depression [Recovered/Resolved]
  - Sleep disorder [Recovered/Resolved]
  - Muscle spasms [Recovered/Resolved]
  - Hot flush [Recovered/Resolved]
  - COVID-19 [Recovered/Resolved]
  - Hyperphagia [Recovered/Resolved]
  - Weight increased [Recovered/Resolved]
  - Pain [Recovered/Resolved]
  - Insomnia [Recovered/Resolved]

NARRATIVE: CASE EVENT DATE: 20220101
